FAERS Safety Report 4932929-X (Version None)
Quarter: 2006Q1

REPORT INFORMATION
  Report Type: 
  Country: None (occurrence: None)
  Receive Date: 20060301
  Receipt Date: 20060301
  Transmission Date: 20060701
  Serious: Yes (Life-Threatening, Hospitalization, Other)
  Sender: FDA-Public Use
  Company Number: None

PATIENT
  Age: 24 Year
  Sex: Female
  Weight: 100 kg

DRUGS (3)
  1. DURAMORPH 5 MG/10 ML BAXTER [Suspect]
     Indication: POSTOPERATIVE ANALGESIA
     Dosage: 0.25 MG ONCE IT  ONE DOSE WITH SPINAL
     Route: 042
  2. CEFAZOLIN [Concomitant]
  3. OXYTOCIN [Concomitant]

REACTIONS (2)
  - ANAPHYLACTIC REACTION [None]
  - PROCEDURAL COMPLICATION [None]
